FAERS Safety Report 12825205 (Version 1)
Quarter: 2016Q4

REPORT INFORMATION
  Report Type: Report from Study
  Country: US (occurrence: US)
  Receive Date: 20161006
  Receipt Date: 20161006
  Transmission Date: 20170207
  Serious: No
  Sender: FDA-Public Use
  Company Number: US-AMGEN-USASL2016074741

PATIENT
  Age: 87 Year
  Sex: Male

DRUGS (3)
  1. PROLIA [Suspect]
     Active Substance: DENOSUMAB
     Indication: OSTEOPOROSIS
     Dosage: UNK
     Route: 065
     Dates: start: 201506
  2. IRON [Concomitant]
     Active Substance: IRON
  3. VITAMIN C [Concomitant]
     Active Substance: ASCORBIC ACID

REACTIONS (7)
  - Skin induration [Unknown]
  - Bone disorder [Unknown]
  - Memory impairment [Unknown]
  - Concussion [Unknown]
  - Anaemia [Unknown]
  - Melanocytic naevus [Unknown]
  - Nervous system disorder [Unknown]

NARRATIVE: CASE EVENT DATE: 2015
